FAERS Safety Report 9669421 (Version 1)
Quarter: 2013Q4

REPORT INFORMATION
  Report Type: Spontaneous
  Country: GB (occurrence: None)
  Receive Date: 20131101
  Receipt Date: 20131101
  Transmission Date: 20140711
  Serious: Yes (Hospitalization, Disabling)
  Sender: FDA-Public Use
  Company Number: 13-0544

PATIENT
  Age: 38 Year
  Sex: Female

DRUGS (1)
  1. BOTULINUM TOXIN TYPE A [Suspect]
     Indication: HYPERTONIC BLADDER
     Dates: start: 201207, end: 201207

REACTIONS (5)
  - Myelitis transverse [None]
  - Hypoaesthesia [None]
  - Muscular weakness [None]
  - Fall [None]
  - Multiple sclerosis [None]
